FAERS Safety Report 19135685 (Version 3)
Quarter: 2021Q2

REPORT INFORMATION
  Report Type: Report from Study
  Country: US (occurrence: US)
  Receive Date: 20210414
  Receipt Date: 20210519
  Transmission Date: 20210717
  Serious: Yes (Hospitalization, Other)
  Sender: FDA-Public Use
  Company Number: US-MALLINCKRODT PHARMACEUTICALS-T202101336

PATIENT
  Sex: Male
  Weight: 8 kg

DRUGS (2)
  1. REPOSITORY CORTICOTROPIN INJECTION [Suspect]
     Active Substance: CORTICOTROPIN
     Indication: INFANTILE SPASMS
     Dosage: 0.35 MILLILITER, BID
     Route: 030
     Dates: start: 20210216, end: 2021
  2. REPOSITORY CORTICOTROPIN INJECTION [Suspect]
     Active Substance: CORTICOTROPIN
     Dosage: 0.04 MILLILITER
     Route: 065
     Dates: start: 20210505, end: 20210510

REACTIONS (19)
  - Weight increased [Not Recovered/Not Resolved]
  - Pain [Not Recovered/Not Resolved]
  - Heart rate increased [Unknown]
  - Irritability [Not Recovered/Not Resolved]
  - Gastrooesophageal reflux disease [Unknown]
  - Blood pressure increased [Unknown]
  - Seizure [Not Recovered/Not Resolved]
  - Deafness [Unknown]
  - Partial seizures [Not Recovered/Not Resolved]
  - Fatigue [Not Recovered/Not Resolved]
  - SARS-CoV-2 test positive [Unknown]
  - Condition aggravated [Not Recovered/Not Resolved]
  - Incorrect dose administered [Unknown]
  - Blood glucose decreased [Unknown]
  - Blindness [Unknown]
  - Developmental delay [Not Recovered/Not Resolved]
  - Affective disorder [Not Recovered/Not Resolved]
  - Hunger [Unknown]
  - Therapeutic product effect incomplete [Not Recovered/Not Resolved]

NARRATIVE: CASE EVENT DATE: 2021
